FAERS Safety Report 22292919 (Version 2)
Quarter: 2023Q2

REPORT INFORMATION
  Report Type: Spontaneous
  Country: BR (occurrence: BR)
  Receive Date: 20230508
  Receipt Date: 20230511
  Transmission Date: 20230721
  Serious: Yes (Death, Hospitalization, Other)
  Sender: FDA-Public Use
  Company Number: BR-CELLTRION INC.-2023BR003136

PATIENT

DRUGS (2)
  1. INFLIXIMAB [Suspect]
     Active Substance: INFLIXIMAB
     Indication: Crohn^s disease
     Dosage: UNK
     Route: 042
  2. INFLIXIMAB [Suspect]
     Active Substance: INFLIXIMAB
     Dosage: UNK
     Route: 042

REACTIONS (11)
  - Death [Fatal]
  - Perforation [Unknown]
  - Ascites [Unknown]
  - Fistula [Unknown]
  - Malnutrition [Unknown]
  - Pleural effusion [Unknown]
  - Abdominal pain [Unknown]
  - Drug-induced liver injury [Unknown]
  - Pyrexia [Unknown]
  - Sepsis [Unknown]
  - Tuberculosis [Unknown]
